FAERS Safety Report 20293795 (Version 1)
Quarter: 2022Q1

REPORT INFORMATION
  Report Type: Spontaneous
  Country: DE (occurrence: DE)
  Receive Date: 20220104
  Receipt Date: 20220104
  Transmission Date: 20220423
  Serious: Yes (Hospitalization)
  Sender: FDA-Public Use
  Company Number: DE-EMA-DD-20211227-singh_p11-223120

PATIENT
  Age: 54 Year
  Sex: Female

DRUGS (3)
  1. VON WILLEBRAND FACTOR HUMAN [Suspect]
     Active Substance: VON WILLEBRAND FACTOR HUMAN
     Indication: Systemic scleroderma
     Dosage: UNK
     Route: 065
  2. VONICOG ALFA [Suspect]
     Active Substance: VONICOG ALFA
     Dosage: 8450 INTERNATIONAL UNIT/KILOGRAM
     Route: 065
  3. AMBRISENTAN [Suspect]
     Active Substance: AMBRISENTAN
     Indication: Condition aggravated
     Dosage: UNK
     Route: 065

REACTIONS (1)
  - Anaemia [Unknown]
